FAERS Safety Report 4279678-1 (Version None)
Quarter: 2004Q1

REPORT INFORMATION
  Report Type: 
  Country: None (occurrence: None)
  Receive Date: 20040122
  Receipt Date: 20040115
  Transmission Date: 20041129
  Serious: Yes (Other)
  Sender: FDA-Public Use
  Company Number: 2004194425JP

PATIENT
  Age: 33 Year
  Sex: Male

DRUGS (3)
  1. CAMPTOSAR [Suspect]
     Indication: COLON CANCER
     Dosage: 100 MG, IV DRIP
     Route: 041
     Dates: start: 20031216
  2. FLUOROURACIL [Suspect]
     Indication: COLON CANCER
  3. CALCIUM FOLINATE (CALCIUM FOLINATE) [Suspect]
     Indication: COLON CANCER

REACTIONS (1)
  - IRRITABILITY [None]
